FAERS Safety Report 9084283 (Version 2)
Quarter: 2013Q1

REPORT INFORMATION
  Report Type: Report from Study
  Country: DE (occurrence: DE)
  Receive Date: 20130130
  Receipt Date: 20130213
  Transmission Date: 20140127
  Serious: Yes (Hospitalization)
  Sender: FDA-Public Use
  Company Number: DE-SHIRE-ALL1-2013-00422

PATIENT
  Age: 50 Year
  Sex: Male
  Weight: 54.8 kg

DRUGS (7)
  1. IDURSULFASE [Suspect]
     Indication: MUCOPOLYSACCHARIDOSIS II
     Dosage: 0.5 MG/KG, 1X/WEEK(26MG)
     Route: 041
     Dates: start: 20061128
  2. FRUSEMIDE                          /00032601/ [Concomitant]
     Indication: CARDIOVASCULAR DISORDER
     Dosage: UNK, UNKNOWN
     Route: 065
     Dates: start: 201206
  3. METOPROLOL [Concomitant]
     Indication: CARDIOVASCULAR DISORDER
     Dosage: 25 MG, 2X/DAY:BID
     Route: 048
     Dates: start: 201206
  4. METOPROLOL [Concomitant]
     Dosage: 25 MG/KG, 1X/DAY:QD
     Route: 048
     Dates: start: 20090520, end: 2009
  5. PHENPROCOUMON [Concomitant]
     Indication: CARDIOVASCULAR DISORDER
     Dosage: 0.5 MG, 1X/DAY:QD
     Route: 048
     Dates: start: 2011
  6. SALMETEROL [Concomitant]
     Indication: PREMEDICATION
     Dosage: UNK(1 PUFF), 2X/DAY:BID
     Route: 055
     Dates: start: 2009
  7. FLUTICASONE [Concomitant]
     Indication: RESPIRATORY DISORDER
     Dosage: UNK(1 PUFF), 2X/DAY:BID
     Route: 055
     Dates: start: 20081127

REACTIONS (4)
  - Chronic obstructive pulmonary disease [Recovering/Resolving]
  - Chills [Recovering/Resolving]
  - Dyspnoea [Recovering/Resolving]
  - Pyrexia [Recovering/Resolving]
